FAERS Safety Report 8722301 (Version 5)
Quarter: 2013Q4

REPORT INFORMATION
  Report Type: Spontaneous
  Country: US (occurrence: US)
  Receive Date: 20120814
  Receipt Date: 20131009
  Transmission Date: 20140711
  Serious: Yes (Hospitalization, Other)
  Sender: FDA-Public Use
  Company Number: US-009507513-1208USA002053

PATIENT
  Sex: Female
  Weight: 67.12 kg

DRUGS (6)
  1. FOSAMAX [Suspect]
     Indication: OSTEOPOROSIS
     Dosage: 10 MG, QD
     Route: 048
     Dates: start: 199906, end: 200307
  2. FOSAMAX [Suspect]
     Dosage: 70 MG, QW
     Route: 048
     Dates: end: 200307
  3. ACTONEL [Suspect]
     Indication: OSTEOPOROSIS
     Dosage: 35 MG, QW
     Dates: start: 20031229, end: 201007
  4. ACTONEL [Suspect]
     Dosage: 150 MG, QM
     Dates: start: 20031229, end: 201007
  5. CALCIUM (UNSPECIFIED) [Concomitant]
     Indication: OSTEOPOROSIS
  6. TRAVATAN [Suspect]

REACTIONS (57)
  - Femur fracture [Unknown]
  - Intramedullary rod insertion [Unknown]
  - Femur fracture [Recovering/Resolving]
  - Intramedullary rod insertion [Unknown]
  - Medical device removal [Unknown]
  - Appendicectomy [Unknown]
  - Aortic aneurysm repair [Unknown]
  - Femoral neck fracture [Unknown]
  - Hip surgery [Unknown]
  - Spinal laminectomy [Unknown]
  - Low turnover osteopathy [Unknown]
  - Device malfunction [Unknown]
  - Arthritis [Unknown]
  - Depression [Recovered/Resolved]
  - Anxiety [Recovered/Resolved]
  - Tooth extraction [Unknown]
  - Dental caries [Unknown]
  - Device failure [Unknown]
  - Tendonitis [Unknown]
  - Upper-airway cough syndrome [Unknown]
  - Dermatitis contact [Unknown]
  - Productive cough [Unknown]
  - Hypertension [Unknown]
  - Blood triglycerides increased [Unknown]
  - Acute sinusitis [Unknown]
  - Bronchitis [Unknown]
  - Laceration [Unknown]
  - Haematoma [Unknown]
  - Osteoarthritis [Unknown]
  - Aortic aneurysm [Unknown]
  - Neuropathy peripheral [Unknown]
  - Dry throat [Unknown]
  - White blood cell count increased [Unknown]
  - Blood glucose abnormal [Unknown]
  - Left atrial dilatation [Unknown]
  - Respiratory tract congestion [Unknown]
  - Anaemia postoperative [Unknown]
  - Arthritis [Unknown]
  - Lumbar spinal stenosis [Unknown]
  - Cystitis [Unknown]
  - Impaired healing [Unknown]
  - Bronchitis [Unknown]
  - Bronchitis [Unknown]
  - Syncope [Unknown]
  - Bone contusion [Unknown]
  - Urinary tract infection [Unknown]
  - Impaired healing [Unknown]
  - Chest X-ray abnormal [Unknown]
  - Blood glucose increased [Unknown]
  - Blood cholesterol increased [Unknown]
  - Musculoskeletal chest pain [Unknown]
  - Pain in extremity [Unknown]
  - Pain in extremity [Unknown]
  - Pain in extremity [Unknown]
  - Muscle spasms [Unknown]
  - Arthralgia [Unknown]
  - Erythema [Unknown]
